FAERS Safety Report 17709969 (Version 1)
Quarter: 2020Q2

REPORT INFORMATION
  Report Type: Spontaneous
  Country: BR (occurrence: BR)
  Receive Date: 20200427
  Receipt Date: 20200427
  Transmission Date: 20200714
  Serious: Yes (Hospitalization, Other)
  Sender: FDA-Public Use
  Company Number: BR-GLAXOSMITHKLINE-BR2019GSK100005

PATIENT
  Sex: Female
  Weight: 56.5 kg

DRUGS (2)
  1. AMOXICILLIN. [Suspect]
     Active Substance: AMOXICILLIN
     Indication: EAR INFECTION
     Dosage: UNK
  2. BENLYSTA [Suspect]
     Active Substance: BELIMUMAB
     Indication: SYSTEMIC LUPUS ERYTHEMATOSUS
     Dosage: 1 DF, UNK (120 MG AND 400MG)
     Dates: start: 20180306

REACTIONS (6)
  - Product dose omission [Unknown]
  - Ear infection [Unknown]
  - Intentional dose omission [Unknown]
  - Drug hypersensitivity [Recovered/Resolved]
  - Product availability issue [Unknown]
  - Systemic lupus erythematosus [Unknown]
